FAERS Safety Report 16327913 (Version 2)
Quarter: 2019Q2

REPORT INFORMATION
  Report Type: Spontaneous
  Country: US (occurrence: US)
  Receive Date: 20190518
  Receipt Date: 20190518
  Transmission Date: 20190711
  Serious: No
  Sender: FDA-Public Use
  Company Number: US-ZYDUS-034520

PATIENT
  Age: 68 Year
  Sex: Female

DRUGS (9)
  1. MYRBETRIQ [Concomitant]
     Active Substance: MIRABEGRON
     Indication: HYPERTONIC BLADDER
     Route: 065
  2. GABAPENTIN. [Concomitant]
     Active Substance: GABAPENTIN
     Indication: STRESS
     Route: 065
     Dates: start: 20190214
  3. LIRAGLUTIDE [Concomitant]
     Active Substance: LIRAGLUTIDE
     Indication: TYPE 2 DIABETES MELLITUS
     Route: 058
  4. VENLAFAXINE EXTENDED RELEASE [Concomitant]
     Active Substance: VENLAFAXINE HYDROCHLORIDE
     Indication: AFFECTIVE DISORDER
     Route: 065
  5. METFORMIN [Concomitant]
     Active Substance: METFORMIN HYDROCHLORIDE
     Indication: TYPE 2 DIABETES MELLITUS
     Route: 065
  6. BUPROPION. [Concomitant]
     Active Substance: BUPROPION
     Indication: NERVOUSNESS
     Route: 065
  7. METHYLPREDNISOLONE. [Suspect]
     Active Substance: METHYLPREDNISOLONE
     Indication: BRAIN OPERATION
     Route: 048
     Dates: start: 20190211, end: 20190217
  8. VENLAFAXINE EXTENDED RELEASE [Concomitant]
     Active Substance: VENLAFAXINE HYDROCHLORIDE
     Indication: AFFECTIVE DISORDER
     Route: 065
  9. SIMVASTATIN. [Concomitant]
     Active Substance: SIMVASTATIN
     Indication: HYPERCHOLESTEROLAEMIA
     Route: 065

REACTIONS (5)
  - Rash pruritic [Recovered/Resolved]
  - Rash papular [Not Recovered/Not Resolved]
  - Rash papular [Not Recovered/Not Resolved]
  - Rash [Not Recovered/Not Resolved]
  - Rash pruritic [Not Recovered/Not Resolved]

NARRATIVE: CASE EVENT DATE: 201902
